FAERS Safety Report 23086307 (Version 2)
Quarter: 2024Q1

REPORT INFORMATION
  Report Type: Report from Study
  Country: CA (occurrence: CA)
  Receive Date: 20231019
  Receipt Date: 20240217
  Transmission Date: 20240409
  Serious: Yes (Other)
  Sender: FDA-Public Use
  Company Number: CA-002147023-NVSC2021CA269571

PATIENT
  Sex: Female

DRUGS (5)
  1. HYRIMOZ [Suspect]
     Active Substance: ADALIMUMAB-ADAZ
     Dosage: 160 MG Q 14 DAYS
     Route: 058
     Dates: start: 20211112
  2. HYRIMOZ [Suspect]
     Active Substance: ADALIMUMAB-ADAZ
     Indication: Crohn^s disease
     Dosage: 40 MG
     Route: 058
     Dates: start: 20210829
  3. AZATHIOPRINE [Concomitant]
     Active Substance: AZATHIOPRINE
     Indication: Product used for unknown indication
     Dosage: 100 MG, QD
     Route: 048
  4. AZATHIOPRINE [Concomitant]
     Active Substance: AZATHIOPRINE
     Dosage: 50 MG, QD; 2 TABLET
     Route: 065
  5. PREDNISONE [Concomitant]
     Active Substance: PREDNISONE
     Indication: Product used for unknown indication
     Dosage: UNK
     Route: 065

REACTIONS (14)
  - Uterine haemorrhage [Unknown]
  - Arthralgia [Unknown]
  - Fatigue [Unknown]
  - COVID-19 [Unknown]
  - Pyrexia [Unknown]
  - Chest discomfort [Unknown]
  - Haemorrhoids [Unknown]
  - Anal fissure [Unknown]
  - Heavy menstrual bleeding [Unknown]
  - Pelvic pain [Unknown]
  - Abscess drainage [Unknown]
  - Anorectal discomfort [Unknown]
  - Constipation [Unknown]
  - Asthenia [Unknown]
